FAERS Safety Report 10133499 (Version 1)
Quarter: 2014Q2

REPORT INFORMATION
  Report Type: Spontaneous
  Country: CA (occurrence: CA)
  Receive Date: 20140428
  Receipt Date: 20140428
  Transmission Date: 20141212
  Serious: Yes (Death, Hospitalization)
  Sender: FDA-Public Use
  Company Number: CA-B.I. PHARMACEUTICALS,INC./RIDGEFIELD-2014-BI-18692CN

PATIENT
  Age: 79 Year
  Sex: Female

DRUGS (7)
  1. PRADAXA [Suspect]
     Indication: PRODUCT USED FOR UNKNOWN INDICATION
     Route: 065
  2. METFORMIN [Concomitant]
     Route: 065
  3. SPIRIVA [Concomitant]
     Route: 065
  4. ZOLOFT [Concomitant]
     Route: 065
  5. METOPROLOL [Concomitant]
     Route: 065
  6. ALLOPURINOL [Concomitant]
     Route: 065
  7. AMITRIPTYLINE [Concomitant]
     Route: 065

REACTIONS (1)
  - Renal failure [Fatal]
